FAERS Safety Report 10909181 (Version 1)
Quarter: 2015Q1

REPORT INFORMATION
  Report Type: Spontaneous
  Country: US (occurrence: US)
  Receive Date: 20150312
  Receipt Date: 20150312
  Transmission Date: 20150721
  Serious: No
  Sender: FDA-Public Use
  Company Number: US-SA-2014SA035914

PATIENT
  Age: 50 Year
  Sex: Female

DRUGS (1)
  1. NASACORT ALLERGY 24HR [Suspect]
     Active Substance: TRIAMCINOLONE ACETONIDE
     Indication: HYPERSENSITIVITY
     Dosage: DOSAGE: 110 MG EACH NARES
     Route: 065
     Dates: start: 20140316

REACTIONS (2)
  - Upper-airway cough syndrome [Not Recovered/Not Resolved]
  - Therapeutic response decreased [Unknown]
